FAERS Safety Report 25369908 (Version 1)
Quarter: 2025Q2

REPORT INFORMATION
  Report Type: Spontaneous
  Country: ZA (occurrence: ZA)
  Receive Date: 20250528
  Receipt Date: 20250528
  Transmission Date: 20250716
  Serious: Yes (Hospitalization)
  Sender: BAYER HEALTHCARE PHARMACEUTICALS INC.
  Company Number: ZA-BAYER-2025A070873

PATIENT
  Age: 55 Year
  Sex: Female

DRUGS (20)
  1. ANGELIQ [Suspect]
     Active Substance: DROSPIRENONE\ESTRADIOL
     Dosage: 1 DF, QD
     Route: 048
  2. Adco linctopent [Concomitant]
     Route: 048
  3. Iliadin baby [Concomitant]
     Route: 045
  4. INDOMETHACIN [Concomitant]
     Active Substance: INDOMETHACIN
     Dosage: 25 MG, TID
     Route: 048
  5. Allergex [Concomitant]
     Route: 048
  6. Synaleve [Concomitant]
     Dosage: 1 DF, TID
     Route: 048
  7. ETORICOXIB [Concomitant]
     Active Substance: ETORICOXIB
     Dosage: 90 MG, QD
     Route: 048
  8. ESCITALOPRAM [Concomitant]
     Active Substance: ESCITALOPRAM OXALATE
     Dosage: 10 MG, QD
     Route: 048
  9. Cataflam d [Concomitant]
     Dosage: 50 MG, TID
     Route: 048
  10. Ceroxim [Concomitant]
     Dosage: 500 MG, BID
     Route: 048
  11. ProbiFlora Rx Intestinal Flora Care [Concomitant]
     Dosage: 1 DF, BID
     Route: 048
  12. MYPAID FORTE [Concomitant]
     Active Substance: ACETAMINOPHEN\IBUPROFEN
     Dosage: 1 DF, BID
     Route: 048
  13. Sinutab [Concomitant]
     Route: 048
  14. Syndol [Concomitant]
     Route: 048
  15. Linctagon [Concomitant]
     Dosage: 1 DF, TID
     Route: 048
  16. ACETYLCYSTEINE [Concomitant]
     Active Substance: ACETYLCYSTEINE
     Dosage: 200 MG, TID
     Route: 048
  17. Corenza c [Concomitant]
     Dosage: 1 DF, TID
     Route: 048
  18. AMITRIPTYLINE [Concomitant]
     Active Substance: AMITRIPTYLINE
     Dosage: 10 MG, QD
     Route: 048
  19. Diclofam [Concomitant]
  20. CLOBAZAM [Concomitant]
     Active Substance: CLOBAZAM
     Dosage: 10 MG, BID
     Route: 048

REACTIONS (1)
  - Shoulder operation [None]
